FAERS Safety Report 8616807-0 (Version None)
Quarter: 2012Q3

REPORT INFORMATION
  Report Type: 
  Country: None (occurrence: None)
  Receive Date: 20120823
  Receipt Date: 20120807
  Transmission Date: 20120928
  Serious: Yes (Hospitalization)
  Sender: FDA-Public Use
  Company Number: US-009507513-1207USA011638

PATIENT

DRUGS (7)
  1. ASPIRIN [Concomitant]
  2. PREMARIN [Concomitant]
  3. JANUMET [Suspect]
     Dosage: 500MG/50 MG, QD
     Route: 048
  4. LISINOPRIL [Concomitant]
  5. TRILIPIX [Concomitant]
  6. VITAMIN D [Concomitant]
  7. JANUMET [Suspect]
     Indication: DIABETES MELLITUS
     Dosage: 500MG/50 MG, BID
     Route: 048

REACTIONS (1)
  - PANCREATITIS ACUTE [None]
